FAERS Safety Report 5495266-3 (Version None)
Quarter: 2007Q4

REPORT INFORMATION
  Report Type: 
  Country: None (occurrence: None)
  Receive Date: 20071024
  Receipt Date: 20071010
  Transmission Date: 20080405
  Serious: Yes (Hospitalization)
  Sender: FDA-Public Use
  Company Number: US-GENENTECH-246642

PATIENT
  Sex: Female

DRUGS (4)
  1. BEVACIZUMAB [Suspect]
     Indication: MACULAR DEGENERATION
     Dosage: 1.25 MG, UNK
     Route: 031
     Dates: start: 20051121, end: 20060927
  2. LUCENTIS [Suspect]
     Indication: MACULAR DEGENERATION
     Dosage: 0.5 MG, QD
     Dates: start: 20061219
  3. VERTEPORFIN [Suspect]
     Indication: MACULAR DEGENERATION
     Route: 042
     Dates: start: 20060719
  4. ASPIRIN [Concomitant]
     Indication: DRUG USE FOR UNKNOWN INDICATION

REACTIONS (1)
  - TRANSIENT ISCHAEMIC ATTACK [None]
